FAERS Safety Report 9290791 (Version 2)
Quarter: 2013Q2

REPORT INFORMATION
  Report Type: Report from Study
  Country: DE (occurrence: DE)
  Receive Date: 20130515
  Receipt Date: 20130612
  Transmission Date: 20140414
  Serious: Yes (Other)
  Sender: FDA-Public Use
  Company Number: DE-ABBOTT-13P-062-1088729-00

PATIENT
  Sex: Female

DRUGS (3)
  1. HUMIRA [Suspect]
     Indication: CROHN^S DISEASE
     Route: 058
     Dates: start: 20121213, end: 20130411
  2. HUMIRA [Suspect]
     Dates: start: 20130528
  3. AZAFALK [Concomitant]
     Indication: CROHN^S DISEASE

REACTIONS (1)
  - Intestinal stenosis [Recovered/Resolved]
